FAERS Safety Report 6430027-X (Version None)
Quarter: 2009Q4

REPORT INFORMATION
  Report Type: 
  Country: None (occurrence: None)
  Receive Date: 20091103
  Receipt Date: 20091019
  Transmission Date: 20100525
  Serious: Yes (Life-Threatening, Hospitalization)
  Sender: FDA-Public Use
  Company Number: 02100-JPN-04-0250

PATIENT
  Age: 68 Year
  Sex: Female
  Weight: 46 kg

DRUGS (5)
  1. PLETAL [Suspect]
     Indication: CEREBRAL INFARCTION
     Dosage: 100 MG, BID, ORAL
     Route: 048
     Dates: start: 20040828, end: 20040906
  2. ELASZYM (ELASTASE) TABLET [Concomitant]
  3. MOBIC (MELOXICAM) CAPSULE [Concomitant]
  4. MERCAZOL (THIAMAZOLE) TABLET [Concomitant]
  5. NORVASC [Concomitant]

REACTIONS (4)
  - HYDROCEPHALUS [None]
  - MENINGITIS [None]
  - RUPTURED CEREBRAL ANEURYSM [None]
  - SUBARACHNOID HAEMORRHAGE [None]
